FAERS Safety Report 6287731-6 (Version None)
Quarter: 2009Q3

REPORT INFORMATION
  Report Type: 
  Country: None (occurrence: None)
  Receive Date: 20090727
  Receipt Date: 20090727
  Transmission Date: 20100115
  Serious: Yes (Other)
  Sender: FDA-Public Use
  Company Number: None

PATIENT
  Age: 58 Year
  Sex: Female
  Weight: 72.7 kg

DRUGS (1)
  1. TROPICAMIDE [Suspect]
     Indication: OPHTHALMOLOGICAL EXAMINATION
     Dosage: 1 OR 2 DROPS, ONE TIME, INTO EYES
     Route: 047
     Dates: start: 20090716

REACTIONS (7)
  - DIPLOPIA [None]
  - DIZZINESS [None]
  - EYE PAIN [None]
  - EYE SWELLING [None]
  - FATIGUE [None]
  - GASTRIC DISORDER [None]
  - INSOMNIA [None]
